FAERS Safety Report 16191289 (Version 2)
Quarter: 2019Q2

REPORT INFORMATION
  Report Type: Report from Study
  Country: AU (occurrence: AU)
  Receive Date: 20190412
  Receipt Date: 20190523
  Transmission Date: 20190711
  Serious: Yes (Other)
  Sender: FDA-Public Use
  Company Number: AU-REGENERON PHARMACEUTICALS, INC.-2019-25417

PATIENT

DRUGS (1)
  1. EYLEA [Suspect]
     Active Substance: AFLIBERCEPT
     Indication: NEOVASCULAR AGE-RELATED MACULAR DEGENERATION
     Dosage: BOTH EYES
     Route: 031
     Dates: start: 201712

REACTIONS (4)
  - Injection site discomfort [Recovered/Resolved]
  - Eye burns [Recovered/Resolved with Sequelae]
  - Blindness transient [Unknown]
  - Central vision loss [Not Recovered/Not Resolved]

NARRATIVE: CASE EVENT DATE: 201712
